FAERS Safety Report 23970354 (Version 1)
Quarter: 2024Q2

REPORT INFORMATION
  Report Type: Spontaneous
  Country: JP (occurrence: JP)
  Receive Date: 20240613
  Receipt Date: 20240613
  Transmission Date: 20240715
  Serious: Yes (Death, Hospitalization, Other)
  Sender: FDA-Public Use
  Company Number: JP-Axellia-005211

PATIENT
  Age: 63 Year
  Sex: Male

DRUGS (2)
  1. VORICONAZOLE [Interacting]
     Active Substance: VORICONAZOLE
     Indication: Adult T-cell lymphoma/leukaemia
  2. LETERMOVIR [Interacting]
     Active Substance: LETERMOVIR
     Indication: Antiviral prophylaxis

REACTIONS (6)
  - Drug interaction [Unknown]
  - Drug level decreased [Unknown]
  - Cerebral haemorrhage [Fatal]
  - Altered state of consciousness [Unknown]
  - Hemiplegia [Unknown]
  - Intracranial aneurysm [Fatal]
